FAERS Safety Report 5349790-4 (Version None)
Quarter: 2007Q2

REPORT INFORMATION
  Report Type: 
  Country: None (occurrence: None)
  Receive Date: 20070607
  Receipt Date: 20070531
  Transmission Date: 20071010
  Serious: Yes (Other)
  Sender: FDA-Public Use
  Company Number: US-PFIZER INC-2007045027

PATIENT
  Sex: Male

DRUGS (4)
  1. LYRICA [Suspect]
  2. WELLBUTRIN [Concomitant]
  3. PROZAC [Concomitant]
  4. VALIUM [Concomitant]

REACTIONS (1)
  - DYSSTASIA [None]
